FAERS Safety Report 8492204-6 (Version None)
Quarter: 2012Q3

REPORT INFORMATION
  Report Type: 
  Country: None (occurrence: None)
  Receive Date: 20120706
  Receipt Date: 20120702
  Transmission Date: 20120928
  Serious: Yes (Hospitalization)
  Sender: FDA-Public Use
  Company Number: US-BAYER-2011-075133

PATIENT
  Age: 28 Year
  Sex: Female

DRUGS (7)
  1. PROTONIX [Concomitant]
  2. LORTAB [Concomitant]
     Indication: PAIN
     Dosage: 7.5 [UNITS NOT PROVIDED] ONE TO TWO EVERY 4 TO 6 HOURS AS OCCASION REQUIRES
     Route: 048
     Dates: start: 20060509
  3. PROMETHAZINE [Concomitant]
  4. MEPERIDINE HCL [Concomitant]
  5. POTASSIUM CHLORIDE [Concomitant]
  6. YAZ [Suspect]
     Dosage: UNK
     Dates: start: 20040101, end: 20090101
  7. NSAID'S [Concomitant]

REACTIONS (4)
  - INJURY [None]
  - PAIN [None]
  - CHOLECYSTITIS CHRONIC [None]
  - GALLBLADDER INJURY [None]
